FAERS Safety Report 21267727 (Version 1)
Quarter: 2022Q3

REPORT INFORMATION
  Report Type: Spontaneous
  Country: US (occurrence: US)
  Receive Date: 20220829
  Receipt Date: 20220829
  Transmission Date: 20221027
  Serious: Yes (Other)
  Sender: FDA-Public Use
  Company Number: US-MALLINCKRODT-T202204553

PATIENT
  Sex: Female

DRUGS (1)
  1. H.P. ACTHAR [Suspect]
     Active Substance: CORTICOTROPIN
     Indication: Multiple sclerosis
     Dosage: 1 MILLILITER (80 UNITS), QD  FOR 5 DAYS
     Route: 058

REACTIONS (1)
  - Multiple sclerosis relapse [Not Recovered/Not Resolved]
